FAERS Safety Report 11605979 (Version 1)
Quarter: 2015Q4

REPORT INFORMATION
  Report Type: Spontaneous
  Country: GB (occurrence: GB)
  Receive Date: 20151007
  Receipt Date: 20151007
  Transmission Date: 20160304
  Serious: Yes (Life-Threatening, Hospitalization)
  Sender: FDA-Public Use
  Company Number: GB-DRREDDYS-GER/UKI/15/0052976

PATIENT
  Age: 69 Year
  Sex: Female
  Weight: 88 kg

DRUGS (8)
  1. LISINOPRIL. [Interacting]
     Active Substance: LISINOPRIL
     Indication: PRODUCT USED FOR UNKNOWN INDICATION
     Route: 048
     Dates: start: 20140101, end: 201504
  2. ASPIRIN. [Concomitant]
     Active Substance: ASPIRIN
     Indication: PRODUCT USED FOR UNKNOWN INDICATION
     Route: 048
     Dates: start: 20140101
  3. ATENOLOL. [Concomitant]
     Active Substance: ATENOLOL
     Indication: PRODUCT USED FOR UNKNOWN INDICATION
     Route: 048
     Dates: start: 20140101
  4. DIAZEPAM. [Concomitant]
     Active Substance: DIAZEPAM
     Indication: PRODUCT USED FOR UNKNOWN INDICATION
     Route: 048
     Dates: start: 20150825, end: 20150909
  5. LISINOPRIL. [Interacting]
     Active Substance: LISINOPRIL
     Route: 048
     Dates: start: 201504, end: 20150910
  6. BENDROFLUMETHIAZIDE [Interacting]
     Active Substance: BENDROFLUMETHIAZIDE
     Indication: PRODUCT USED FOR UNKNOWN INDICATION
     Route: 048
     Dates: start: 19991231, end: 20150910
  7. SIMVASTATIN. [Concomitant]
     Active Substance: SIMVASTATIN
     Indication: PRODUCT USED FOR UNKNOWN INDICATION
     Dates: start: 20131227
  8. SERTRALINE [Suspect]
     Active Substance: SERTRALINE HYDROCHLORIDE
     Indication: DEPRESSION
     Route: 048
     Dates: start: 20150903, end: 20150910

REACTIONS (11)
  - Hypokalaemia [Recovering/Resolving]
  - Blood magnesium decreased [Recovering/Resolving]
  - VIIth nerve paralysis [Recovering/Resolving]
  - Hyponatraemia [Recovering/Resolving]
  - Drug interaction [Unknown]
  - Confusional state [Recovering/Resolving]
  - Lid lag [Recovering/Resolving]
  - Vomiting [Recovering/Resolving]
  - Nausea [Recovered/Resolved]
  - Dysarthria [Recovering/Resolving]
  - Fall [Unknown]

NARRATIVE: CASE EVENT DATE: 20150909
